FAERS Safety Report 5123107-2 (Version None)
Quarter: 2006Q4

REPORT INFORMATION
  Report Type: 
  Country: None (occurrence: None)
  Receive Date: 20061009
  Receipt Date: 20060925
  Transmission Date: 20070319
  Serious: Yes (Hospitalization)
  Sender: FDA-Public Use
  Company Number: PHEH2006US12148

PATIENT
  Age: 76 Year

DRUGS (7)
  1. EXJADE [Suspect]
     Dosage: 1500 MG, QD
     Route: 048
     Dates: start: 20060814, end: 20060920
  2. AVAPRO [Concomitant]
     Indication: HYPERTENSION
  3. ATENOLOL [Concomitant]
     Indication: HYPERTENSION
  4. PRAVACHOL [Concomitant]
     Indication: BLOOD CHOLESTEROL INCREASED
  5. VITAMIN B6 [Concomitant]
  6. FOLIC ACID [Concomitant]
  7. PREDNISONE [Concomitant]
     Indication: MYALGIA

REACTIONS (6)
  - BLOOD BILIRUBIN INCREASED [None]
  - CHROMATURIA [None]
  - DYSPEPSIA [None]
  - DYSPHAGIA [None]
  - ERUCTATION [None]
  - HEPATIC FAILURE [None]
